FAERS Safety Report 21784519 (Version 1)
Quarter: 2022Q4

REPORT INFORMATION
  Report Type: Spontaneous
  Country: DE (occurrence: DE)
  Receive Date: 20221227
  Receipt Date: 20221227
  Transmission Date: 20230113
  Serious: Yes (Hospitalization)
  Sender: FDA-Public Use
  Company Number: DE-GRUNENTHAL-2022-110022

PATIENT
  Age: 56 Year
  Sex: Female

DRUGS (5)
  1. TAPENTADOL HYDROCHLORIDE [Suspect]
     Active Substance: TAPENTADOL HYDROCHLORIDE
     Indication: Intervertebral disc protrusion
     Dosage: 100 MILLIGRAM, 1/DAY
     Route: 048
     Dates: start: 2021
  2. IBUPROFEN [Suspect]
     Active Substance: IBUPROFEN
     Indication: Intervertebral disc protrusion
     Route: 065
     Dates: start: 2021
  3. METAMIZOLE [Suspect]
     Active Substance: METAMIZOLE
     Indication: Pain
     Dosage: 2 GRAM, 1/DAY
     Route: 065
     Dates: start: 2021
  4. METAMIZOLE [Suspect]
     Active Substance: METAMIZOLE
     Indication: Intervertebral disc protrusion
  5. PREDNISOLONE [Suspect]
     Active Substance: PREDNISOLONE
     Indication: Intervertebral disc protrusion
     Dosage: 50 MILLIGRAM, 1/DAY
     Route: 048
     Dates: start: 2021

REACTIONS (1)
  - Drug-induced liver injury [Recovering/Resolving]

NARRATIVE: CASE EVENT DATE: 20210101
